FAERS Safety Report 10085319 (Version 1)
Quarter: 2014Q2

REPORT INFORMATION
  Report Type: Spontaneous
  Country: US (occurrence: US)
  Receive Date: 20140417
  Receipt Date: 20140417
  Transmission Date: 20141212
  Serious: No
  Sender: FDA-Public Use
  Company Number: US-GILEAD-2014-0099827

PATIENT
  Age: 32 Year
  Sex: Male

DRUGS (3)
  1. STRIBILD [Suspect]
     Indication: PRODUCT USED FOR UNKNOWN INDICATION
     Route: 065
  2. ATRIPLA [Concomitant]
  3. CREATINE [Concomitant]
     Indication: MUSCLE BUILDING THERAPY

REACTIONS (1)
  - Blood creatinine increased [Not Recovered/Not Resolved]
